FAERS Safety Report 4448432-X (Version None)
Quarter: 2004Q3

REPORT INFORMATION
  Report Type: 
  Country: None (occurrence: None)
  Receive Date: 20040909
  Receipt Date: 20040909
  Transmission Date: 20050211
  Serious: Yes (Disabling)
  Sender: FDA-Public Use
  Company Number: None

PATIENT
  Age: 40 Year
  Sex: Female
  Weight: 90.7194 kg

DRUGS (4)
  1. DEPO-MEDROL [Suspect]
     Indication: PAIN
     Dosage: 80 MGS  2 WEEKS  EPIDURAL
     Route: 008
     Dates: start: 19990511, end: 19990624
  2. DEPO-MEDROL [Suspect]
     Indication: PAIN IN EXTREMITY
     Dosage: 80 MGS  2 WEEKS  EPIDURAL
     Route: 008
     Dates: start: 19990511, end: 19990624
  3. DEPO-MEDROL [Suspect]
     Indication: PAIN
     Dosage: 80 MGS  2 WEEKS  EPIDURAL
     Route: 008
     Dates: start: 19990606, end: 19990630
  4. DEPO-MEDROL [Suspect]
     Indication: PAIN IN EXTREMITY
     Dosage: 80 MGS  2 WEEKS  EPIDURAL
     Route: 008
     Dates: start: 19990606, end: 19990630

REACTIONS (8)
  - COLD SWEAT [None]
  - FEELING ABNORMAL [None]
  - HEADACHE [None]
  - HEART RATE IRREGULAR [None]
  - HYPOAESTHESIA [None]
  - INJECTION SITE PAIN [None]
  - PAIN IN EXTREMITY [None]
  - SKIN DISCOLOURATION [None]
